FAERS Safety Report 8910996 (Version 2)
Quarter: 2013Q4

REPORT INFORMATION
  Report Type: Report from Study
  Country: DE (occurrence: DE)
  Receive Date: 20121116
  Receipt Date: 20131010
  Transmission Date: 20140711
  Serious: Yes (Hospitalization)
  Sender: FDA-Public Use
  Company Number: DE-SANOFI-AVENTIS-2012SA083216

PATIENT
  Age: 58 Year
  Sex: Male

DRUGS (6)
  1. DOCETAXEL [Suspect]
     Indication: GASTROOESOPHAGEAL CANCER
     Route: 041
     Dates: start: 20121025, end: 20121025
  2. OXALIPLATIN [Suspect]
     Indication: GASTROOESOPHAGEAL CANCER
     Route: 041
     Dates: start: 20121025, end: 20121025
  3. 5-FU [Suspect]
     Indication: GASTROOESOPHAGEAL CANCER
     Route: 041
     Dates: start: 20121026, end: 20121026
  4. FOLINIC ACID [Suspect]
     Indication: GASTROOESOPHAGEAL CANCER
     Route: 042
     Dates: start: 20121025, end: 20121025
  5. DEXAMETHASONE [Concomitant]
  6. ONDANSETRON [Concomitant]

REACTIONS (2)
  - Chest pain [Recovered/Resolved]
  - Blood pressure fluctuation [Recovered/Resolved]
